FAERS Safety Report 11661092 (Version 1)
Quarter: 2015Q4

REPORT INFORMATION
  Report Type: Spontaneous
  Country: VE (occurrence: VE)
  Receive Date: 20151026
  Receipt Date: 20151026
  Transmission Date: 20160304
  Serious: Yes (Other)
  Sender: FDA-Public Use
  Company Number: PHHY2015VE135527

PATIENT
  Sex: Female

DRUGS (2)
  1. VALPRON [Concomitant]
     Indication: PRODUCT USED FOR UNKNOWN INDICATION
     Dosage: 500 MG, UNK
     Route: 065
  2. TEGRETOL [Suspect]
     Active Substance: CARBAMAZEPINE
     Indication: MOVEMENT DISORDER
     Dosage: 3 DF (THREE TABLETS OF TEGRETOL 200 MG), QD
     Route: 048

REACTIONS (2)
  - Seizure [Unknown]
  - Off label use [Unknown]
